FAERS Safety Report 7688199-5 (Version None)
Quarter: 2011Q3

REPORT INFORMATION
  Report Type: 
  Country: None (occurrence: None)
  Receive Date: 20110817
  Receipt Date: 20110525
  Transmission Date: 20111222
  Serious: No
  Sender: FDA-Public Use
  Company Number: US-GLAXOSMITHKLINE-A0929139A

PATIENT
  Age: 76 Year
  Sex: Male

DRUGS (10)
  1. CENTRUM SILVER [Concomitant]
  2. LIPITOR [Concomitant]
  3. ACTOS [Concomitant]
  4. UROXATRAL [Concomitant]
  5. LANTUS [Concomitant]
  6. VOTRIENT [Suspect]
     Indication: RENAL CELL CARCINOMA
     Dosage: 800MG PER DAY
     Route: 048
     Dates: start: 20110516, end: 20110606
  7. COREG [Concomitant]
  8. SLOW FE IRON [Concomitant]
  9. ASPIRIN [Concomitant]
  10. ICAPS [Concomitant]

REACTIONS (6)
  - ABASIA [None]
  - VISION BLURRED [None]
  - ABDOMINAL PAIN UPPER [None]
  - GASTROINTESTINAL DISORDER [None]
  - ASTHENIA [None]
  - FATIGUE [None]
